FAERS Safety Report 13273882 (Version 2)
Quarter: 2017Q1

REPORT INFORMATION
  Report Type: Spontaneous
  Country: AU (occurrence: AU)
  Receive Date: 20170227
  Receipt Date: 20170316
  Transmission Date: 20170428
  Serious: Yes (Other)
  Sender: FDA-Public Use
  Company Number: PHHY2017AU027491

PATIENT
  Age: 75 Year
  Sex: Female

DRUGS (1)
  1. OCTREOTIDE. [Suspect]
     Active Substance: OCTREOTIDE
     Indication: SCLERODERMA
     Dosage: 0.5 MG, QD
     Route: 058

REACTIONS (2)
  - Product use issue [Unknown]
  - Intestinal perforation [Recovered/Resolved]
